FAERS Safety Report 5735366-3 (Version None)
Quarter: 2008Q2

REPORT INFORMATION
  Report Type: 
  Country: None (occurrence: None)
  Receive Date: 20080508
  Receipt Date: 20080508
  Transmission Date: 20081010
  Serious: Yes (Death)
  Sender: FDA-Public Use
  Company Number: None

PATIENT
  Sex: Female
  Weight: 54.4316 kg

DRUGS (1)
  1. DIGITEK  0.125MG  ACTAVIS [Suspect]
     Dosage: 0.125 MG TAB ONE TAB DAILY PO
     Route: 048

REACTIONS (3)
  - CARDIAC DISORDER [None]
  - DIZZINESS [None]
  - NAUSEA [None]
